FAERS Safety Report 8494631-X (Version None)
Quarter: 2012Q3

REPORT INFORMATION
  Report Type: 
  Country: None (occurrence: None)
  Receive Date: 20120709
  Receipt Date: 20120628
  Transmission Date: 20120928
  Serious: Yes (Hospitalization)
  Sender: FDA-Public Use
  Company Number: FR-MPIJNJ-2011-05653

PATIENT

DRUGS (13)
  1. VELCADE [Suspect]
     Indication: MULTIPLE MYELOMA
     Dosage: 2.4 MG, UNK
     Route: 042
     Dates: start: 20111104, end: 20120207
  2. CYCLOPHOSPHAMIDE [Suspect]
     Indication: MULTIPLE MYELOMA
     Dosage: 140 MG, UNK
     Route: 042
     Dates: start: 20111104, end: 20111115
  3. CALCIPARINE [Concomitant]
     Indication: THROMBOSIS PROPHYLAXIS
     Dosage: 0.2 ML, UNK
     Route: 058
     Dates: start: 20111031, end: 20111110
  4. PANTOPRAZOLE [Concomitant]
     Indication: PROPHYLAXIS
     Dosage: 40 MG, UNK
     Route: 048
     Dates: start: 20111031
  5. BISOPROLOL FUMARATE [Concomitant]
     Indication: HYPERTENSION
     Dosage: 1.5 MG, BID
  6. PLAVIX [Concomitant]
     Indication: CARDIAC DISORDER
     Dosage: 1 DF, UNK
  7. LERCANIDIPINE [Concomitant]
     Indication: HYPERTENSION
     Dosage: 1 MG, UNK
  8. PERINDOPRIL ERBUMINE [Concomitant]
     Indication: HYPERTENSION
     Dosage: 1 DF, UNK
  9. EZETIMIBE [Concomitant]
     Dosage: 10 MG, UNK
  10. KLIPAL                             /01259001/ [Concomitant]
     Dosage: 600 MG, UNK
  11. ART [Concomitant]
     Dosage: 50 MG, UNK
  12. DEXAMETHASONE [Suspect]
     Indication: MULTIPLE MYELOMA
     Dosage: 20 MG, UNK
     Route: 048
     Dates: start: 20111104, end: 20111112
  13. IMOVANE [Concomitant]
     Indication: SLEEP DISORDER
     Dosage: 3.75 MG, UNK
     Route: 048
     Dates: start: 20111101

REACTIONS (2)
  - PYREXIA [None]
  - LUNG DISORDER [None]
